FAERS Safety Report 6435351-2 (Version None)
Quarter: 2009Q4

REPORT INFORMATION
  Report Type: 
  Country: None (occurrence: None)
  Receive Date: 20091110
  Receipt Date: 20091026
  Transmission Date: 20100525
  Serious: Yes (Hospitalization)
  Sender: FDA-Public Use
  Company Number: FR-GENENTECH-293359

PATIENT
  Age: 58 Year
  Sex: Female

DRUGS (7)
  1. AVASTIN [Suspect]
     Indication: DRUG USE FOR UNKNOWN INDICATION
     Dosage: 15 MG/KG, Q3W
     Route: 042
     Dates: start: 20090512
  2. XELODA [Suspect]
     Indication: DRUG USE FOR UNKNOWN INDICATION
     Dosage: 500 MG, Q3W
     Route: 048
     Dates: start: 20090512
  3. NEBILOX [Concomitant]
     Indication: DRUG USE FOR UNKNOWN INDICATION
  4. LEXOMIL [Concomitant]
     Indication: DRUG USE FOR UNKNOWN INDICATION
  5. STABLON [Concomitant]
     Indication: DRUG USE FOR UNKNOWN INDICATION
  6. FORLAX (BELGIUM) [Concomitant]
     Indication: DRUG USE FOR UNKNOWN INDICATION
  7. ATACAND [Concomitant]
     Indication: DRUG USE FOR UNKNOWN INDICATION
     Dosage: UNK
     Dates: end: 20090605

REACTIONS (4)
  - BLOOD CREATININE INCREASED [None]
  - HAEMATURIA [None]
  - HYPERTENSION [None]
  - PROTEINURIA [None]
